FAERS Safety Report 9999532 (Version 1)
Quarter: 2014Q1

REPORT INFORMATION
  Report Type: Spontaneous
  Country: US (occurrence: None)
  Receive Date: 20140311
  Receipt Date: 20140311
  Transmission Date: 20141002
  Serious: Yes (Hospitalization)
  Sender: FDA-Public Use
  Company Number: None

PATIENT
  Age: 57 Year
  Sex: Male
  Weight: 128.2 kg

DRUGS (1)
  1. MELOXICAM [Suspect]
     Route: 048
     Dates: start: 20131004, end: 20131015

REACTIONS (2)
  - Fluid retention [None]
  - Cardiac failure congestive [None]
